FAERS Safety Report 16711150 (Version 1)
Quarter: 2019Q4

REPORT INFORMATION
  Report Type: Spontaneous
  Country: US (occurrence: US)
  Receive Date: 20190816
  Receipt Date: 20190816
  Transmission Date: 20200122
  Serious: Yes (Hospitalization)
  Sender: FDA-Public Use
  Company Number: None

PATIENT
  Age: 61 Year
  Sex: Female

DRUGS (10)
  1. FEROSUL TAB 325 MG [Concomitant]
  2. JARDIANCE TAB 25 MG [Concomitant]
  3. LORAZEPAM TAB 0.5 MG [Concomitant]
  4. MUPIROIN OIN 2% [Concomitant]
  5. ENBREL [Suspect]
     Active Substance: ETANERCEPT
     Indication: PSORIATIC ARTHROPATHY
     Dosage: ?          OTHER FREQUENCY:WEEKLY;?
     Route: 058
     Dates: start: 20180119
  6. ENALAPRIL TAB 20 MG [Concomitant]
  7. OXYCOD/APAP TAB 5-325 MG [Concomitant]
  8. ATENOLOL TAB 25 MG [Concomitant]
  9. CITALOPRAM TAB 20 MG [Concomitant]
  10. LIVALO TAB 4 MG [Concomitant]

REACTIONS (2)
  - Therapy cessation [None]
  - Shoulder arthroplasty [None]
